FAERS Safety Report 24712971 (Version 2)
Quarter: 2024Q4

REPORT INFORMATION
  Report Type: Spontaneous
  Country: CN (occurrence: CN)
  Receive Date: 20241209
  Receipt Date: 20241210
  Transmission Date: 20250114
  Serious: Yes (Other)
  Sender: INCYTE
  Company Number: CN-002147023-NVSC2024CN229089

PATIENT

DRUGS (6)
  1. RUXOLITINIB [Suspect]
     Active Substance: RUXOLITINIB
     Indication: Pulmonary haemorrhage
     Dosage: UNK
     Route: 048
     Dates: start: 20230517
  2. CYCLOSPORINE [Suspect]
     Active Substance: CYCLOSPORINE
     Indication: Pulmonary haemorrhage
     Dosage: UNK
     Route: 065
     Dates: end: 20230508
  3. CYCLOSPORINE [Suspect]
     Active Substance: CYCLOSPORINE
     Indication: Acute graft versus host disease
  4. BASILIXIMAB [Suspect]
     Active Substance: BASILIXIMAB
     Indication: Pulmonary haemorrhage
     Dosage: UNK
     Route: 065
     Dates: start: 20230508
  5. BASILIXIMAB [Suspect]
     Active Substance: BASILIXIMAB
     Indication: Immunosuppression
     Dosage: UNK (THREE TIMES)
     Route: 065
     Dates: start: 20230515
  6. BASILIXIMAB [Suspect]
     Active Substance: BASILIXIMAB
     Dosage: UNK, QW
     Route: 065

REACTIONS (4)
  - Drug ineffective [Unknown]
  - Condition aggravated [Unknown]
  - Lung transplant rejection [Unknown]
  - Off label use [Unknown]
